FAERS Safety Report 12470259 (Version 1)
Quarter: 2016Q2

REPORT INFORMATION
  Report Type: Spontaneous
  Country: US (occurrence: US)
  Receive Date: 20160616
  Receipt Date: 20160616
  Transmission Date: 20160815
  Serious: No
  Sender: FDA-Public Use
  Company Number: US-BIOGEN-2016BI00246092

PATIENT
  Sex: Male

DRUGS (1)
  1. AVONEX [Suspect]
     Active Substance: INTERFERON BETA-1A
     Indication: MULTIPLE SCLEROSIS
     Route: 030

REACTIONS (4)
  - Increased appetite [Not Recovered/Not Resolved]
  - Needle fatigue [Not Recovered/Not Resolved]
  - Injection site induration [Not Recovered/Not Resolved]
  - Fatigue [Not Recovered/Not Resolved]
